FAERS Safety Report 4791826-3 (Version None)
Quarter: 2005Q4

REPORT INFORMATION
  Report Type: 
  Country: None (occurrence: None)
  Receive Date: 20051007
  Receipt Date: 20050927
  Transmission Date: 20060501
  Serious: Yes (Hospitalization)
  Sender: FDA-Public Use
  Company Number: GB-JNJFOC-20051000010

PATIENT
  Age: 71 Year
  Sex: Male

DRUGS (2)
  1. HALOPERIDOL [Suspect]
     Indication: DRUG USE FOR UNKNOWN INDICATION
     Route: 048
  2. CLOZARIL [Suspect]
     Indication: SCHIZOPHRENIA
     Route: 048

REACTIONS (7)
  - BLOOD SODIUM DECREASED [None]
  - CONFUSIONAL STATE [None]
  - CONVULSION [None]
  - FULL BLOOD COUNT INCREASED [None]
  - GLASGOW COMA SCALE ABNORMAL [None]
  - PNEUMONIA ASPIRATION [None]
  - VOMITING [None]
